FAERS Safety Report 9271327 (Version 1)
Quarter: 2013Q2

REPORT INFORMATION
  Report Type: Spontaneous
  Country: US (occurrence: US)
  Receive Date: 20130506
  Receipt Date: 20130506
  Transmission Date: 20140414
  Serious: Yes (Hospitalization)
  Sender: FDA-Public Use
  Company Number: US-ROCHE-1220932

PATIENT
  Age: 57 Year
  Sex: Female

DRUGS (5)
  1. XELODA [Suspect]
     Indication: BREAST CANCER METASTATIC
     Route: 048
  2. XELODA [Suspect]
     Route: 048
  3. TRILEPTAL [Concomitant]
     Indication: CONVULSION
  4. GABAPENTIN [Concomitant]
     Indication: CONVULSION
  5. FOLIC ACID [Concomitant]

REACTIONS (6)
  - Diarrhoea [Not Recovered/Not Resolved]
  - Vomiting [Recovered/Resolved]
  - Convulsion [Not Recovered/Not Resolved]
  - Decreased appetite [Not Recovered/Not Resolved]
  - Fatigue [Not Recovered/Not Resolved]
  - Memory impairment [Unknown]
